FAERS Safety Report 8895654 (Version 2)
Quarter: 2012Q4

REPORT INFORMATION
  Report Type: Report from Study
  Country: US (occurrence: US)
  Receive Date: 20121107
  Receipt Date: 20121121
  Transmission Date: 20130627
  Serious: Yes (Hospitalization, Other)
  Sender: FDA-Public Use
  Company Number: US-TEVA-329958USA

PATIENT
  Age: 41 None
  Sex: Female
  Weight: 72.64 kg

DRUGS (15)
  1. NUVIGIL [Suspect]
     Indication: NARCOLEPSY
     Dosage: 150 mg maximum daily
     Route: 048
     Dates: start: 201101
  2. PRENATAL VITAMINS                  /01549301/ [Concomitant]
     Indication: PREGNANCY
  3. LEVOTHROID [Concomitant]
     Indication: HYPOTHYROIDISM
     Dosage: 150 Microgram Daily;
     Dates: start: 20120707
  4. LIOTHYRONINE SODIUM [Concomitant]
     Indication: THYROID DISORDER
     Dosage: 10 Microgram Daily;
     Dates: start: 20120514
  5. LABETALOL [Concomitant]
     Indication: HYPERTENSION
     Dosage: 200 Milligram Daily;
     Route: 048
     Dates: start: 20120306, end: 20120424
  6. LABETALOL [Concomitant]
     Dosage: 3 tablets orally 2 times a day
     Route: 048
     Dates: start: 201209
  7. ANUSOL-HC [Concomitant]
     Dosage: 2 Dosage forms Daily;
     Dates: start: 20120720
  8. RHO D IMMUNE GLOBULIN [Concomitant]
     Route: 030
     Dates: start: 20120720
  9. TYLENOL W/CODEINE NO. 3 [Concomitant]
     Indication: PAIN
     Dosage: 300-30 mg
     Route: 048
     Dates: start: 20120501
  10. ESGIC/FIORICET [Concomitant]
     Indication: HEADACHE
     Dosage: 50-325-40mg
     Route: 048
     Dates: start: 20120406
  11. METHYLIN [Concomitant]
     Dosage: 10 Milligram Daily; 1-2 tablets
     Route: 048
  12. METROGEL [Concomitant]
     Indication: ACNE
     Dates: start: 20120417, end: 20120501
  13. ZOVIRAX [Concomitant]
     Indication: HERPES VIRUS INFECTION
     Dosage: two times a day
     Route: 048
  14. MOTRIN [Concomitant]
     Route: 048
     Dates: start: 201209
  15. ACYCLOVIR [Concomitant]
     Indication: HERPES SIMPLEX

REACTIONS (4)
  - Foetal growth restriction [Recovered/Resolved]
  - Pre-eclampsia [Unknown]
  - Premature delivery [Recovered/Resolved]
  - Pregnancy [Recovered/Resolved]
